FAERS Safety Report 5065264-2 (Version None)
Quarter: 2006Q3

REPORT INFORMATION
  Report Type: 
  Country: None (occurrence: None)
  Receive Date: 20060707
  Receipt Date: 20050621
  Transmission Date: 20061208
  Serious: Yes (Other)
  Sender: FDA-Public Use
  Company Number: SUS1-2005-00531

PATIENT
  Sex: Male

DRUGS (2)
  1. PENTASA [Suspect]
     Indication: INFLAMMATORY BOWEL DISEASE
     Dosage: SEE IMAGE, ORAL
     Route: 048
     Dates: end: 20050101
  2. PENTASA [Suspect]
     Indication: INFLAMMATORY BOWEL DISEASE
     Dosage: SEE IMAGE, ORAL
     Route: 048
     Dates: start: 20050101, end: 20050601

REACTIONS (1)
  - PERICARDITIS [None]
